FAERS Safety Report 8791091 (Version 1)
Quarter: 2012Q4

REPORT INFORMATION
  Report Type: Spontaneous
  Country: GB (occurrence: None)
  Receive Date: 20120911
  Receipt Date: 20120911
  Transmission Date: 20130627
  Serious: Yes (Other)
  Sender: FDA-Public Use
  Company Number: GER/UKI/12/0025758

PATIENT
  Sex: Male

DRUGS (2)
  1. OMEPRAZOLE (OMEPRAZOLE) [Suspect]
  2. MADOPAR [Suspect]
     Dosage: 4 in 1 D

REACTIONS (3)
  - Cardiac disorder [None]
  - Drug effect decreased [None]
  - Drug interaction [None]
